FAERS Safety Report 9760975 (Version 1)
Quarter: 2013Q4

REPORT INFORMATION
  Report Type: Spontaneous
  Country: DE (occurrence: DE)
  Receive Date: 20131216
  Receipt Date: 20131216
  Transmission Date: 20140711
  Serious: Yes (Hospitalization)
  Sender: FDA-Public Use
  Company Number: DE-TEVA-450847GER

PATIENT
  Age: 62 Year
  Sex: Male

DRUGS (4)
  1. FLUOROURACIL [Suspect]
     Indication: RECTAL CANCER METASTATIC
     Route: 042
  2. FOLINIC ACID [Interacting]
     Indication: RECTAL CANCER METASTATIC
     Route: 042
  3. OXALIPLATIN [Interacting]
     Indication: RECTAL CANCER METASTATIC
     Route: 065
  4. PHENPROCOUMON [Concomitant]
     Indication: ATRIAL FIBRILLATION
     Route: 065

REACTIONS (2)
  - Pulmonary granuloma [Recovering/Resolving]
  - Drug interaction [Unknown]
